FAERS Safety Report 12237077 (Version 1)
Quarter: 2016Q2

REPORT INFORMATION
  Report Type: Spontaneous
  Country: US (occurrence: US)
  Receive Date: 20160405
  Receipt Date: 20160405
  Transmission Date: 20160815
  Serious: No
  Sender: FDA-Public Use
  Company Number: US-009507513-1603USA011955

PATIENT

DRUGS (2)
  1. IMPLANON [Suspect]
     Active Substance: ETONOGESTREL
     Dosage: 1 ROD EVERY 3 YEARS IN RIGHT ARM
     Route: 059
     Dates: start: 2011
  2. NEXPLANON [Suspect]
     Active Substance: ETONOGESTREL
     Dosage: UNK, IN LEFT ARM
     Route: 059
     Dates: start: 201509

REACTIONS (4)
  - Complication associated with device [Not Recovered/Not Resolved]
  - Incorrect drug administration duration [Unknown]
  - Overdose [Unknown]
  - No adverse event [Unknown]

NARRATIVE: CASE EVENT DATE: 2014
